FAERS Safety Report 14057368 (Version 2)
Quarter: 2017Q4

REPORT INFORMATION
  Report Type: Spontaneous
  Country: US (occurrence: US)
  Receive Date: 20171006
  Receipt Date: 20171011
  Transmission Date: 20180321
  Serious: No
  Sender: FDA-Public Use
  Company Number: US-PFIZER INC-2017430834

PATIENT
  Age: 9 Year
  Sex: Male
  Weight: 40.82 kg

DRUGS (3)
  1. QUILLICHEW ER [Suspect]
     Active Substance: METHYLPHENIDATE HYDROCHLORIDE
     Dosage: 20 MG, UNK
  2. ZYRTEC [Concomitant]
     Active Substance: CETIRIZINE HYDROCHLORIDE
     Indication: HYPERSENSITIVITY
     Dosage: 1 DF, DAILY
     Route: 048
  3. QUILLICHEW ER [Suspect]
     Active Substance: METHYLPHENIDATE HYDROCHLORIDE
     Indication: ATTENTION DEFICIT/HYPERACTIVITY DISORDER
     Dosage: 30 MG, 1X/DAY ( CHEW IN THE MORNING)
     Dates: start: 2016

REACTIONS (3)
  - Drug dose omission [Unknown]
  - Loss of personal independence in daily activities [Unknown]
  - Drug intolerance [Recovered/Resolved]

NARRATIVE: CASE EVENT DATE: 2016
